FAERS Safety Report 5234033-2 (Version None)
Quarter: 2007Q1

REPORT INFORMATION
  Report Type: 
  Country: None (occurrence: None)
  Receive Date: 20070208
  Receipt Date: 20070205
  Transmission Date: 20070707
  Serious: Yes (Other)
  Sender: FDA-Public Use
  Company Number: US-GILEAD-2007-0011206

PATIENT
  Age: 28 Year
  Sex: Female

DRUGS (5)
  1. TRUVADA [Suspect]
     Indication: HIV INFECTION
     Route: 048
     Dates: start: 20051201
  2. AZT [Concomitant]
     Indication: HIV INFECTION
     Route: 048
     Dates: start: 20051201
  3. KALETRA [Concomitant]
     Indication: HIV INFECTION
     Route: 048
     Dates: start: 20051201
  4. SEPTRA [Concomitant]
     Indication: ANTIFUNGAL PROPHYLAXIS
  5. SEROQUEL [Concomitant]

REACTIONS (3)
  - ABORTION SPONTANEOUS [None]
  - BLIGHTED OVUM [None]
  - DRUG EXPOSURE BEFORE PREGNANCY [None]
